FAERS Safety Report 23728340 (Version 1)
Quarter: 2024Q2

REPORT INFORMATION
  Report Type: Spontaneous
  Country: US (occurrence: None)
  Receive Date: 20240410
  Receipt Date: 20240410
  Transmission Date: 20240715
  Serious: No
  Sender: FDA-Public Use
  Company Number: None

PATIENT
  Age: 33 Year
  Sex: Female
  Weight: 54 kg

DRUGS (2)
  1. VTAMA [Suspect]
     Active Substance: TAPINAROF
     Indication: Guttate psoriasis
     Dosage: OTHER QUANTITY : 1 AFFECTED SKIN AREA;?FREQUENCY : DAILY;?
     Route: 061
     Dates: start: 20240408, end: 20240408
  2. OTEZLA [Concomitant]
     Active Substance: APREMILAST

REACTIONS (6)
  - Migraine [None]
  - Drug ineffective [None]
  - Hyperhidrosis [None]
  - Headache [None]
  - Pain [None]
  - Swelling [None]

NARRATIVE: CASE EVENT DATE: 20240408
